FAERS Safety Report 6452871-5 (Version None)
Quarter: 2009Q4

REPORT INFORMATION
  Report Type: 
  Country: None (occurrence: None)
  Receive Date: 20091124
  Receipt Date: 20090114
  Transmission Date: 20100525
  Serious: No
  Sender: FDA-Public Use
  Company Number: US-ABBOTT-09P-163-0496200-00

PATIENT
  Sex: Male

DRUGS (14)
  1. TRICOR [Suspect]
     Indication: BLOOD CHOLESTEROL INCREASED
     Route: 048
     Dates: start: 20080602, end: 20080606
  2. TRICOR [Suspect]
     Indication: BLOOD TRIGLYCERIDES INCREASED
     Route: 048
     Dates: start: 20080701, end: 20080701
  3. TRICOR [Suspect]
     Indication: HYPERLIPIDAEMIA
  4. ZOCOR [Concomitant]
     Indication: DRUG USE FOR UNKNOWN INDICATION
     Route: 048
  5. TOPROL-XL [Concomitant]
     Indication: DRUG USE FOR UNKNOWN INDICATION
     Route: 048
  6. FLUOXETINE HCL [Concomitant]
     Indication: DRUG USE FOR UNKNOWN INDICATION
  7. GLIPIZIDE [Concomitant]
     Indication: DRUG USE FOR UNKNOWN INDICATION
  8. METFORMIN HCL [Concomitant]
     Indication: DRUG USE FOR UNKNOWN INDICATION
     Route: 048
  9. QUINAPRIL [Concomitant]
     Indication: DRUG USE FOR UNKNOWN INDICATION
     Route: 048
  10. TEMAZEPAM [Concomitant]
     Indication: INSOMNIA
     Route: 048
  11. ACTOS [Concomitant]
     Indication: DRUG USE FOR UNKNOWN INDICATION
  12. METOPROLOL [Concomitant]
     Indication: DRUG USE FOR UNKNOWN INDICATION
  13. SIMAVASTATIN [Concomitant]
     Indication: DRUG USE FOR UNKNOWN INDICATION
  14. HYDROCODONE [Concomitant]
     Indication: DRUG USE FOR UNKNOWN INDICATION
     Dosage: 7.5/500MG

REACTIONS (2)
  - RASH [None]
  - URTICARIA [None]
